FAERS Safety Report 23842225 (Version 1)
Quarter: 2024Q2

REPORT INFORMATION
  Report Type: Spontaneous
  Country: ZA (occurrence: None)
  Receive Date: 20240510
  Receipt Date: 20240510
  Transmission Date: 20240716
  Serious: Yes (Hospitalization)
  Sender: FDA-Public Use
  Company Number: 2024A105669

PATIENT
  Age: 85 Year
  Sex: Male

DRUGS (9)
  1. BUDESONIDE\FORMOTEROL [Suspect]
     Active Substance: BUDESONIDE\FORMOTEROL
     Indication: Asthma
     Dosage: 160 UG, UNKNOWN UNKNOWN
     Route: 055
  2. FUROSEMIDE [Concomitant]
     Active Substance: FUROSEMIDE
     Indication: Hypertension
     Route: 048
  3. CARVEDILOL [Concomitant]
     Active Substance: CARVEDILOL
     Indication: Hypertension
     Route: 048
  4. RIVAROXABAN [Concomitant]
     Active Substance: RIVAROXABAN
     Indication: Blood test
     Route: 048
  5. SPIRACTIN [Concomitant]
     Indication: Hypertension
     Route: 048
  6. ALLOPURINOL [Concomitant]
     Active Substance: ALLOPURINOL
     Indication: Gout
     Route: 048
  7. PENDINE [Concomitant]
     Indication: Hypertension
     Route: 048
  8. SYNALEVE [Concomitant]
     Indication: Pain
     Route: 048
  9. AMLOC [Concomitant]
     Indication: Hypertension
     Route: 048

REACTIONS (2)
  - Cardiac failure [Unknown]
  - Renal failure [Unknown]
